FAERS Safety Report 13044864 (Version 1)
Quarter: 2016Q4

REPORT INFORMATION
  Report Type: Spontaneous
  Country: US (occurrence: US)
  Receive Date: 20161220
  Receipt Date: 20161220
  Transmission Date: 20170207
  Serious: No
  Sender: FDA-Public Use
  Company Number: US-B.I. PHARMACEUTICALS,INC./RIDGEFIELD-2016-BI-085118

PATIENT
  Age: 60 Year
  Sex: Female

DRUGS (1)
  1. TRAJENTA [Suspect]
     Active Substance: LINAGLIPTIN
     Indication: TYPE 2 DIABETES MELLITUS
     Dosage: 5 MG DAILY;  FORM STRENGTH: 5 MG; FORMULATION: TABLET? ADMINISTRATION CORRECT? YES ?ACTION(S) TAKEN
     Route: 048
     Dates: end: 2016

REACTIONS (4)
  - Muscular weakness [Unknown]
  - Lethargy [Unknown]
  - Glycosylated haemoglobin increased [Unknown]
  - Renal impairment [Unknown]

NARRATIVE: CASE EVENT DATE: 2016
